FAERS Safety Report 7189499-8 (Version None)
Quarter: 2010Q4

REPORT INFORMATION
  Report Type: 
  Country: None (occurrence: None)
  Receive Date: 20101223
  Receipt Date: 20101216
  Transmission Date: 20110411
  Serious: Yes (Hospitalization)
  Sender: FDA-Public Use
  Company Number: 2006BI011424

PATIENT
  Age: 54 Year
  Sex: Female

DRUGS (1)
  1. AVONEX [Suspect]
     Indication: MULTIPLE SCLEROSIS
     Route: 030
     Dates: start: 20010618

REACTIONS (8)
  - APHAGIA [None]
  - ASTHENIA [None]
  - GENERAL SYMPTOM [None]
  - LOCAL SWELLING [None]
  - PARAESTHESIA [None]
  - RESTLESS LEGS SYNDROME [None]
  - SPINAL CORD COMPRESSION [None]
  - SUTURE RELATED COMPLICATION [None]
